FAERS Safety Report 13417239 (Version 1)
Quarter: 2017Q2

REPORT INFORMATION
  Report Type: Other
  Country: US (occurrence: US)
  Receive Date: 20170406
  Receipt Date: 20170406
  Transmission Date: 20170830
  Serious: No
  Sender: FDA-Public Use
  Company Number: US-TRIS PHARMA, INC.-1065110

PATIENT
  Age: 65 Year
  Sex: Female
  Weight: 59.09 kg

DRUGS (1)
  1. DEXTROMETHORPHAN POLISTIREX ER OS [Suspect]
     Active Substance: DEXTROMETHORPHAN HYDROBROMIDE
     Indication: COUGH
     Route: 048
     Dates: start: 20161022, end: 20161024

REACTIONS (5)
  - Drug ineffective [None]
  - Cough [None]
  - Hyperhidrosis [None]
  - Increased upper airway secretion [None]
  - Throat irritation [None]

NARRATIVE: CASE EVENT DATE: 20161022
